FAERS Safety Report 9766102 (Version 1)
Quarter: 2013Q4

REPORT INFORMATION
  Report Type: Spontaneous
  Country: US (occurrence: US)
  Receive Date: 20131217
  Receipt Date: 20131217
  Transmission Date: 20140711
  Serious: No
  Sender: FDA-Public Use
  Company Number: US-GLAXOSMITHKLINE-A1018543A

PATIENT
  Age: 49 Year
  Sex: Female
  Weight: 90.9 kg

DRUGS (2)
  1. VOTRIENT [Suspect]
     Indication: PRODUCT USED FOR UNKNOWN INDICATION
     Dosage: 400MG PER DAY
     Route: 048
     Dates: start: 20120617
  2. MELOXICAM [Concomitant]
     Dosage: 7.5MG PER DAY
     Dates: end: 20121206

REACTIONS (10)
  - Diarrhoea [Recovered/Resolved]
  - Alanine aminotransferase increased [Recovered/Resolved]
  - Aspartate aminotransferase increased [Recovered/Resolved]
  - Nausea [Recovered/Resolved]
  - Hair colour changes [Recovered/Resolved]
  - Fatigue [Recovered/Resolved]
  - Dysgeusia [Recovered/Resolved]
  - Irritability [Recovered/Resolved]
  - Initial insomnia [Recovered/Resolved]
  - Vision blurred [Recovered/Resolved]
